FAERS Safety Report 9443689 (Version 1)
Quarter: 2013Q3

REPORT INFORMATION
  Report Type: Spontaneous
  Country: RS (occurrence: RS)
  Receive Date: 20130806
  Receipt Date: 20130806
  Transmission Date: 20140515
  Serious: Yes (Other)
  Sender: FDA-Public Use
  Company Number: RS-BAXTER-2013BAX030699

PATIENT
  Age: 33 Year
  Sex: Female

DRUGS (5)
  1. ENDOXAN 1 G [Suspect]
     Indication: LUPUS NEPHRITIS
     Route: 042
  2. METHYLPREDNISOLONE [Suspect]
     Indication: LUPUS NEPHRITIS
     Route: 042
  3. PREDNISONE [Concomitant]
     Indication: PROPHYLAXIS
  4. PREDNISONE [Concomitant]
  5. AZATHIOPRINE [Concomitant]
     Indication: PROPHYLAXIS

REACTIONS (7)
  - Encephalitis [Recovered/Resolved]
  - Hypertension [Unknown]
  - Oedema peripheral [Unknown]
  - Hepatosplenomegaly [Unknown]
  - Staphylococcal sepsis [Recovered/Resolved]
  - Brain abscess [Recovered/Resolved]
  - Renal failure [Not Recovered/Not Resolved]
